FAERS Safety Report 23220552 (Version 1)
Quarter: 2023Q4

REPORT INFORMATION
  Report Type: Spontaneous
  Country: US (occurrence: US)
  Receive Date: 20231123
  Receipt Date: 20231123
  Transmission Date: 20240109
  Serious: Yes (Other)
  Sender: FDA-Public Use
  Company Number: US-BRISTOL-MYERS SQUIBB COMPANY-2023-163444

PATIENT
  Age: 71 Year
  Sex: Female

DRUGS (1)
  1. POMALYST [Suspect]
     Active Substance: POMALIDOMIDE
     Indication: Chemotherapy
     Dosage: TAKE 1 CAPSULE BY MOUTH EVERY DAY ON DAYS 1-21 FOLLOWED BY 7 DAYS REST EVERY 28 DAY CHEMOTHERAPY CYC
     Route: 048
     Dates: start: 20230209

REACTIONS (1)
  - Hepatic enzyme increased [Recovering/Resolving]
